FAERS Safety Report 13830035 (Version 1)
Quarter: 2017Q3

REPORT INFORMATION
  Report Type: Spontaneous
  Country: US (occurrence: US)
  Receive Date: 20170803
  Receipt Date: 20170803
  Transmission Date: 20171127
  Serious: Yes (Hospitalization)
  Sender: FDA-Public Use
  Company Number: US-TEVA-794067USA

PATIENT
  Age: 60 Year
  Sex: Male

DRUGS (6)
  1. PIPERACILLIN AND TAZOBACTAM [Concomitant]
     Active Substance: PIPERACILLIN SODIUM\TAZOBACTAM SODIUM
     Indication: HERPES VIRUS INFECTION
     Route: 065
  2. ACICLOVIR [Suspect]
     Active Substance: ACYCLOVIR
     Indication: HERPES VIRUS INFECTION
     Dosage: EIGHT 400MG TABLETS AT ONCE
     Route: 048
  3. ACICLOVIR [Suspect]
     Active Substance: ACYCLOVIR
     Indication: HERPES VIRUS INFECTION
     Route: 048
  4. NICARDIPINE [Concomitant]
     Active Substance: NICARDIPINE
     Indication: MALIGNANT HYPERTENSION
     Route: 065
  5. VANCOMYCIN [Concomitant]
     Active Substance: VANCOMYCIN
     Indication: HERPES VIRUS INFECTION
     Route: 065
  6. NALOXONE [Concomitant]
     Active Substance: NALOXONE
     Dosage: 1MG
     Route: 065

REACTIONS (2)
  - Intentional overdose [Recovered/Resolved]
  - Neurotoxicity [Recovered/Resolved]
